FAERS Safety Report 4868697-X (Version None)
Quarter: 2005Q4

REPORT INFORMATION
  Report Type: 
  Country: None (occurrence: None)
  Receive Date: 20051223
  Receipt Date: 20051214
  Transmission Date: 20060501
  Serious: Yes (Other)
  Sender: FDA-Public Use
  Company Number: 2005169311

PATIENT
  Sex: Male

DRUGS (4)
  1. NEURONTIN [Suspect]
     Indication: CONVULSION
  2. TEGRETOL [Suspect]
     Indication: CONVULSION
  3. PHENOBARBITAL TAB [Suspect]
     Indication: CONVULSION
  4. LORAZEPAM [Concomitant]

REACTIONS (16)
  - ABASIA [None]
  - ANGINA PECTORIS [None]
  - BACK PAIN [None]
  - BLINDNESS UNILATERAL [None]
  - BLOOD CHOLESTEROL [None]
  - BLOOD CHOLESTEROL INCREASED [None]
  - CARDIAC VALVE DISEASE [None]
  - CATARACT [None]
  - CONVULSION [None]
  - DYSPNOEA [None]
  - HEADACHE [None]
  - NECK PAIN [None]
  - OCULAR VASCULAR DISORDER [None]
  - PALPITATIONS [None]
  - STOMACH DISCOMFORT [None]
  - UNEVALUABLE EVENT [None]
